FAERS Safety Report 13045519 (Version 1)
Quarter: 2016Q4

REPORT INFORMATION
  Report Type: Report from Study
  Country: US (occurrence: US)
  Receive Date: 20161220
  Receipt Date: 20161220
  Transmission Date: 20170207
  Serious: Yes (Hospitalization, Other)
  Sender: FDA-Public Use
  Company Number: US-BAYER-2016-119108

PATIENT
  Age: 73 Year
  Sex: Female

DRUGS (14)
  1. NEXAVAR [Suspect]
     Active Substance: SORAFENIB
     Indication: CHRONIC MYELOID LEUKAEMIA
     Dosage: 200 MG, QD
     Route: 048
     Dates: start: 20160722
  2. NEXAVAR [Suspect]
     Active Substance: SORAFENIB
     Indication: PHILADELPHIA CHROMOSOME POSITIVE
     Dosage: 200 MG, QD
     Route: 048
     Dates: start: 2016, end: 2016
  3. AZACITIDINE. [Concomitant]
     Active Substance: AZACITIDINE
  4. ATIVAN [Concomitant]
     Active Substance: LORAZEPAM
  5. DULOXETINE. [Concomitant]
     Active Substance: DULOXETINE
  6. LOPERAMIDE [Concomitant]
     Active Substance: LOPERAMIDE
  7. VIDAZA [Concomitant]
     Active Substance: AZACITIDINE
  8. ZYPREXA [Concomitant]
     Active Substance: OLANZAPINE
  9. NEXAVAR [Suspect]
     Active Substance: SORAFENIB
     Indication: ACUTE MYELOMONOCYTIC LEUKAEMIA
     Dosage: 200 MG, QD
     Route: 048
     Dates: start: 2016
  10. ZOFRAN [Concomitant]
     Active Substance: ONDANSETRON HYDROCHLORIDE
  11. NEXAVAR [Suspect]
     Active Substance: SORAFENIB
     Indication: ACUTE MYELOMONOCYTIC LEUKAEMIA
     Dosage: 200 MG, BID
     Route: 048
     Dates: start: 20160609, end: 20160627
  12. TEMAZEPAM. [Concomitant]
     Active Substance: TEMAZEPAM
  13. OLANZAPINE. [Concomitant]
     Active Substance: OLANZAPINE
  14. ONDANSETRON [Concomitant]
     Active Substance: ONDANSETRON

REACTIONS (23)
  - Platelet count decreased [Not Recovered/Not Resolved]
  - Pyrexia [Not Recovered/Not Resolved]
  - Rash [Not Recovered/Not Resolved]
  - Transfusion [Not Recovered/Not Resolved]
  - Transfusion [Not Recovered/Not Resolved]
  - Limb mass [Not Recovered/Not Resolved]
  - Asthenia [Not Recovered/Not Resolved]
  - Alopecia [Not Recovered/Not Resolved]
  - Depression [Not Recovered/Not Resolved]
  - Dysphonia [Not Recovered/Not Resolved]
  - Squamous cell carcinoma [None]
  - Anxiety [Not Recovered/Not Resolved]
  - Asthenia [Not Recovered/Not Resolved]
  - Dyspnoea [Not Recovered/Not Resolved]
  - Blood count abnormal [None]
  - Haemoglobin decreased [Not Recovered/Not Resolved]
  - Fatigue [Not Recovered/Not Resolved]
  - Skin lesion [None]
  - White blood cell count decreased [Not Recovered/Not Resolved]
  - Red blood cell count decreased [Not Recovered/Not Resolved]
  - Fatigue [Not Recovered/Not Resolved]
  - Off label use [None]
  - Erythema [Not Recovered/Not Resolved]

NARRATIVE: CASE EVENT DATE: 2016
